FAERS Safety Report 7588806-1 (Version None)
Quarter: 2011Q3

REPORT INFORMATION
  Report Type: 
  Country: None (occurrence: None)
  Receive Date: 20110705
  Receipt Date: 20110622
  Transmission Date: 20111222
  Serious: Yes (Hospitalization)
  Sender: FDA-Public Use
  Company Number: GB-SANOFI-AVENTIS-2011SA039676

PATIENT
  Age: 62 Year
  Sex: Male
  Weight: 75.3 kg

DRUGS (18)
  1. ATENOLOL [Concomitant]
     Route: 065
     Dates: end: 20110527
  2. GABAPENTIN [Concomitant]
     Route: 065
  3. METHOTREXATE [Suspect]
     Indication: RHEUMATOID ARTHRITIS
     Route: 065
     Dates: end: 20110527
  4. BEZAFIBRATE [Concomitant]
     Route: 065
  5. FOLIC ACID [Concomitant]
     Route: 065
     Dates: end: 20110527
  6. TRAMADOL HCL [Concomitant]
  7. WARFARIN SODIUM [Concomitant]
  8. CALCICHEW D3 [Concomitant]
     Route: 065
  9. MEBEVERINE [Concomitant]
     Route: 065
  10. PREDNISOLONE [Concomitant]
     Route: 065
     Dates: end: 20110527
  11. LEFLUNOMIDE [Suspect]
     Indication: RHEUMATOID ARTHRITIS
     Route: 065
     Dates: end: 20110527
  12. ETANERCEPT [Concomitant]
  13. NITROGLYCERIN [Concomitant]
  14. ADALAT CC [Concomitant]
     Route: 065
  15. LISINOPRIL [Concomitant]
     Route: 065
  16. PREDNISOLONE [Concomitant]
     Indication: RHEUMATOID ARTHRITIS
     Route: 065
     Dates: start: 20110527
  17. OMEPRAZOLE [Concomitant]
     Route: 065
  18. PRAVASTATIN [Concomitant]
     Route: 065

REACTIONS (4)
  - RECTAL HAEMORRHAGE [None]
  - ANAEMIA [None]
  - BONE MARROW TOXICITY [None]
  - PANCYTOPENIA [None]
